FAERS Safety Report 6296278-2 (Version None)
Quarter: 2009Q3

REPORT INFORMATION
  Report Type: 
  Country: None (occurrence: None)
  Receive Date: 20090804
  Receipt Date: 20090723
  Transmission Date: 20100115
  Serious: Yes (Hospitalization, Other)
  Sender: FDA-Public Use
  Company Number: FR-PFIZER INC-2008153892

PATIENT
  Age: 47 Year

DRUGS (7)
  1. MARAVIROC [Suspect]
     Indication: HIV TEST POSITIVE
     Dosage: 150 MG, 2X/DAY
     Route: 048
     Dates: start: 20081117, end: 20081204
  2. MARAVIROC [Interacting]
     Dosage: 150 MG, 2X/DAY
     Route: 048
     Dates: start: 20081205, end: 20081205
  3. PREZISTA [Interacting]
     Indication: HIV TEST POSITIVE
     Dosage: 600 MG, 2X/DAY
     Route: 048
     Dates: start: 20080505
  4. ETRAVIRINE [Interacting]
     Indication: HIV TEST POSITIVE
     Dosage: 250 MG, 2X/DAY
     Route: 048
     Dates: start: 20080505
  5. ISENTRESS [Concomitant]
     Indication: HIV TEST POSITIVE
     Dosage: 400 MG, 2X/DAY
     Route: 048
     Dates: start: 20080505
  6. NORVIR [Concomitant]
     Indication: HIV TEST POSITIVE
     Dosage: 100 MG, 2X/DAY
     Route: 048
     Dates: start: 19970310
  7. ESCITALOPRAM [Concomitant]
     Dosage: 20 MG, 1X/DAY
     Route: 048

REACTIONS (3)
  - DRUG INTERACTION [None]
  - PRURITUS [None]
  - RASH MACULO-PAPULAR [None]
